FAERS Safety Report 9714273 (Version 3)
Quarter: 2015Q3

REPORT INFORMATION
  Report Type: Spontaneous
  Country: US (occurrence: US)
  Receive Date: 20131126
  Receipt Date: 20150803
  Transmission Date: 20151125
  Serious: No
  Sender: FDA-Public Use
  Company Number: US-GILEAD-2008-0019147

PATIENT
  Age: 76 Year
  Sex: Male
  Weight: 59.42 kg

DRUGS (9)
  1. INSPRA [Concomitant]
     Active Substance: EPLERENONE
  2. AMIODARONE [Concomitant]
     Active Substance: AMIODARONE
  3. LASIX [Concomitant]
     Active Substance: FUROSEMIDE
  4. COREG CR [Concomitant]
     Active Substance: CARVEDILOL PHOSPHATE
  5. LETAIRIS [Suspect]
     Active Substance: AMBRISENTAN
  6. COUMADIN [Concomitant]
     Active Substance: WARFARIN SODIUM
  7. COZAAR [Concomitant]
     Active Substance: LOSARTAN POTASSIUM
  8. ALLOPURINOL. [Concomitant]
     Active Substance: ALLOPURINOL
  9. PRANDIN [Concomitant]
     Active Substance: REPAGLINIDE

REACTIONS (2)
  - Peripheral swelling [Recovered/Resolved]
  - Tremor [Not Recovered/Not Resolved]
